FAERS Safety Report 20564959 (Version 2)
Quarter: 2022Q1

REPORT INFORMATION
  Report Type: Spontaneous
  Country: JP (occurrence: JP)
  Receive Date: 20220308
  Receipt Date: 20220316
  Transmission Date: 20220423
  Serious: Yes (Other)
  Sender: FDA-Public Use
  Company Number: JP-NOVARTISPH-NVSJ2022JP003957

PATIENT
  Sex: Female
  Weight: 2.336 kg

DRUGS (5)
  1. ELTROMBOPAG OLAMINE [Suspect]
     Active Substance: ELTROMBOPAG OLAMINE
     Indication: Foetal exposure during pregnancy
     Dosage: MATERNAL DOSE: 25MG/DAY
     Route: 064
     Dates: start: 20180416
  2. ELTROMBOPAG OLAMINE [Suspect]
     Active Substance: ELTROMBOPAG OLAMINE
     Dosage: MATERNAL DOSE: 50MG/DAY
     Route: 064
  3. ELTROMBOPAG OLAMINE [Suspect]
     Active Substance: ELTROMBOPAG OLAMINE
     Dosage: MATERNAL DOSE: 25MG/DAY
     Route: 064
  4. NEORAL [Suspect]
     Active Substance: CYCLOSPORINE
     Indication: Foetal exposure during pregnancy
     Dosage: MATERNAL EXPOSURE PRIOR TO PREGNANCY: ADJUSTED  BETWEEN 50 AND 200 MG/DAY
     Route: 064
     Dates: start: 2014, end: 20200901
  5. SODIUM FERROUS CITRATE [Suspect]
     Active Substance: SODIUM FERROUS CITRATE
     Indication: Foetal exposure during pregnancy
     Dosage: MATERNAL DOSE: 50 MG, BID
     Route: 064
     Dates: start: 20210330, end: 20210527

REACTIONS (3)
  - Low birth weight baby [Recovering/Resolving]
  - Foetal growth restriction [Recovering/Resolving]
  - Foetal exposure during pregnancy [Unknown]

NARRATIVE: CASE EVENT DATE: 20210301
